FAERS Safety Report 5383505-9 (Version None)
Quarter: 2007Q3

REPORT INFORMATION
  Report Type: 
  Country: None (occurrence: None)
  Receive Date: 20070706
  Receipt Date: 20070628
  Transmission Date: 20080115
  Serious: Yes (Death)
  Sender: FDA-Public Use
  Company Number: FABR-12040

PATIENT
  Age: 47 Year
  Sex: Male
  Weight: 73 kg

DRUGS (2)
  1. FABRAZYME [Suspect]
     Indication: FABRY'S DISEASE
     Dosage: 70 MG Q2WKS IV
     Route: 042
     Dates: start: 20040203
  2. TRIATEC. MFR: HOECHST PHARMACEUTICALS, INCORPORATED [Concomitant]

REACTIONS (1)
  - CEREBROVASCULAR ACCIDENT [None]
